FAERS Safety Report 5337992-2 (Version None)
Quarter: 2007Q2

REPORT INFORMATION
  Report Type: 
  Country: None (occurrence: None)
  Receive Date: 20070530
  Receipt Date: 20070522
  Transmission Date: 20071010
  Serious: Yes (Hospitalization, Other)
  Sender: FDA-Public Use
  Company Number: IT-ELI_LILLY_AND_COMPANY-IT200705006750

PATIENT
  Sex: Female

DRUGS (4)
  1. ZYPREXA [Suspect]
     Indication: BIPOLAR DISORDER
     Dosage: 10 MG, DAILY (1/D)
     Route: 048
     Dates: start: 20000101, end: 20070101
  2. EUTIROX [Concomitant]
     Indication: HYPOTHYROIDISM
     Dosage: 100 UG, UNK
  3. EUTIROX [Concomitant]
     Dosage: 150 UG, UNK
  4. ANTIHYPERTENSIVES [Concomitant]
     Indication: HYPERTENSION

REACTIONS (5)
  - DIABETES MELLITUS [None]
  - HYPOTHYROIDISM [None]
  - INTERSTITIAL LUNG DISEASE [None]
  - PLEURISY [None]
  - WEIGHT INCREASED [None]
